FAERS Safety Report 8386924-1 (Version None)
Quarter: 2012Q2

REPORT INFORMATION
  Report Type: 
  Country: None (occurrence: None)
  Receive Date: 20120525
  Receipt Date: 20120516
  Transmission Date: 20120825
  Serious: Yes (Hospitalization, Other)
  Sender: FDA-Public Use
  Company Number: TH-SANOFI-AVENTIS-2012SA035430

PATIENT
  Sex: Male
  Weight: 93 kg

DRUGS (3)
  1. PLAVIX [Suspect]
     Dosage: COUNTERFEIT
     Route: 065
  2. PLAVIX [Suspect]
     Route: 065
  3. PLAVIX [Suspect]
     Route: 065

REACTIONS (3)
  - PRODUCT COUNTERFEIT [None]
  - CARDIAC FAILURE [None]
  - MYOCARDIAL INFARCTION [None]
